FAERS Safety Report 7795429-8 (Version None)
Quarter: 2011Q4

REPORT INFORMATION
  Report Type: 
  Country: None (occurrence: None)
  Receive Date: 20111004
  Receipt Date: 20110930
  Transmission Date: 20120403
  Serious: Yes (Life-Threatening)
  Sender: FDA-Public Use
  Company Number: FR-B.I. PHARMACEUTICALS,INC./RIDGEFIELD-2011-FF-00908FF

PATIENT
  Sex: Female
  Weight: 82 kg

DRUGS (4)
  1. PRADAXA [Suspect]
     Indication: KNEE ARTHROPLASTY
     Dosage: 150 MG
     Route: 048
     Dates: start: 20110927, end: 20110928
  2. XANAX [Concomitant]
     Dosage: 0.115 MG
     Dates: start: 20110927
  3. ACETAMINOPHEN [Concomitant]
     Dosage: 4 G
     Route: 042
     Dates: start: 20110926
  4. NEBIVOLOL HCL [Concomitant]
     Dosage: 5 MG
     Route: 048
     Dates: start: 20110928

REACTIONS (2)
  - ATRIAL FIBRILLATION [None]
  - PULMONARY EMBOLISM [None]
